FAERS Safety Report 9126549 (Version 1)
Quarter: 2013Q1

REPORT INFORMATION
  Report Type: Spontaneous
  Country: GB (occurrence: GB)
  Receive Date: 20130117
  Receipt Date: 20130117
  Transmission Date: 20140127
  Serious: Yes (Other)
  Sender: FDA-Public Use
  Company Number: GB-ROCHE-1178391

PATIENT
  Sex: Female

DRUGS (3)
  1. BONDRONAT [Suspect]
     Indication: PRODUCT USED FOR UNKNOWN INDICATION
     Route: 065
     Dates: start: 20130104
  2. FRAGMIN [Concomitant]
  3. LETROZOLE [Concomitant]

REACTIONS (4)
  - Deafness [Unknown]
  - Confusional state [Unknown]
  - Balance disorder [Unknown]
  - Movement disorder [Unknown]
